FAERS Safety Report 8402669-3 (Version None)
Quarter: 2012Q2

REPORT INFORMATION
  Report Type: 
  Country: None (occurrence: None)
  Receive Date: 20120601
  Receipt Date: 20120525
  Transmission Date: 20120825
  Serious: Yes (Hospitalization)
  Sender: FDA-Public Use
  Company Number: DE-ROCHE-1072316

PATIENT
  Sex: Female
  Weight: 81 kg

DRUGS (5)
  1. AVASTIN [Suspect]
     Indication: BREAST CANCER
     Dosage: LAST DOSE PRIOR TO SAE 18/MAY/2012
     Route: 042
     Dates: start: 20120425
  2. CARBOPLATIN [Suspect]
     Indication: BREAST CANCER
     Route: 042
     Dates: start: 20120425, end: 20120524
  3. PACLITAXEL [Suspect]
     Indication: BREAST CANCER
     Dosage: LAST DOSE PRIOR TO SAE 18/MAY/2012
     Route: 042
     Dates: start: 20120425, end: 20120524
  4. CARBOPLATIN [Suspect]
     Route: 042
     Dates: start: 20120518, end: 20120524
  5. DOXORUBICIN HCL [Suspect]
     Indication: BREAST CANCER
     Dosage: LAST DOSE PRIOR TO SAE 18/MAY/2012
     Route: 042
     Dates: start: 20120425, end: 20120524

REACTIONS (1)
  - GENERAL PHYSICAL HEALTH DETERIORATION [None]
